FAERS Safety Report 5688197-7 (Version None)
Quarter: 2008Q1

REPORT INFORMATION
  Report Type: 
  Country: None (occurrence: None)
  Receive Date: 20080327
  Receipt Date: 20080312
  Transmission Date: 20080703
  Serious: Yes (Other)
  Sender: FDA-Public Use
  Company Number: CIP08000429

PATIENT
  Age: 69 Year
  Sex: Female

DRUGS (2)
  1. DIDRONEL [Suspect]
     Indication: EXTRASKELETAL OSSIFICATION
     Dosage: 1000 MG DAILY, ORAL, 800 MG, DAILY, ORAL
     Route: 048
     Dates: start: 20070117, end: 20070502
  2. DIDRONEL [Suspect]
     Indication: EXTRASKELETAL OSSIFICATION
     Dosage: 1000 MG DAILY, ORAL, 800 MG, DAILY, ORAL
     Route: 048
     Dates: start: 20070802, end: 20071017

REACTIONS (6)
  - ARTHRALGIA [None]
  - CALCINOSIS [None]
  - CONDITION AGGRAVATED [None]
  - FEELING ABNORMAL [None]
  - INTERMITTENT CLAUDICATION [None]
  - OSTEONECROSIS [None]
